FAERS Safety Report 15607820 (Version 1)
Quarter: 2018Q4

REPORT INFORMATION
  Report Type: Spontaneous
  Country: GR (occurrence: GR)
  Receive Date: 20181112
  Receipt Date: 20181112
  Transmission Date: 20190205
  Serious: Yes (Other)
  Sender: FDA-Public Use
  Company Number: GR-PFIZER INC-2018459958

PATIENT
  Age: 70 Year
  Sex: Male

DRUGS (18)
  1. TRANSAMIC ACID [Concomitant]
     Dosage: UNK
  2. SOLU-MEDROL [Concomitant]
     Active Substance: METHYLPREDNISOLONE SODIUM SUCCINATE
     Dosage: UNK
  3. ZAVICEFTA [Concomitant]
     Active Substance: AVIBACTAM SODIUM\CEFTAZIDIME
     Dosage: UNK
  4. TYGACIL [Concomitant]
     Active Substance: TIGECYCLINE
     Dosage: UNK
  5. LEVOPHED [Concomitant]
     Active Substance: NOREPINEPHRINE BITARTRATE
     Dosage: UNK
  6. ECALTA [Suspect]
     Active Substance: ANIDULAFUNGIN
     Indication: FUNGAL INFECTION
     Dosage: UNK
     Dates: end: 20181023
  7. LOSEC [OMEPRAZOLE] [Concomitant]
     Dosage: UNK
  8. HUMAN ALBUMIN [Concomitant]
     Active Substance: ALBUMIN HUMAN
     Dosage: UNK
  9. BACTRIMEL [Concomitant]
     Active Substance: SULFAMETHOXAZOLE\TRIMETHOPRIM
     Dosage: UNK
  10. BEGALIN-P [Concomitant]
     Dosage: UNK
     Route: 042
     Dates: start: 20181022
  11. BEROVENT [Concomitant]
     Active Substance: ALBUTEROL SULFATE\IPRATROPIUM BROMIDE
     Dosage: UNK
  12. ZOVIRAX [Concomitant]
     Active Substance: ACYCLOVIR
     Dosage: UNK
  13. COLISTIN [Concomitant]
     Active Substance: COLISTIN
     Dosage: UNK
  14. XOZAL [Concomitant]
     Active Substance: LEVOCETIRIZINE
     Dosage: UNK
  15. LASIX [Concomitant]
     Active Substance: FUROSEMIDE
     Dosage: UNK
  16. PRIMPERAN [Concomitant]
     Active Substance: METOCLOPRAMIDE HYDROCHLORIDE
     Dosage: UNK
  17. VONCON [Concomitant]
     Active Substance: VANCOMYCIN HYDROCHLORIDE
     Dosage: UNK (DEPENDING ON LEVELS)
  18. GRANULOKINE [Concomitant]
     Active Substance: FILGRASTIM
     Dosage: UNK

REACTIONS (5)
  - Dyspnoea [Unknown]
  - Renal impairment [Unknown]
  - Condition aggravated [Unknown]
  - Pleural effusion [Unknown]
  - Pulmonary oedema [Recovered/Resolved]

NARRATIVE: CASE EVENT DATE: 20181022
